FAERS Safety Report 14587223 (Version 5)
Quarter: 2018Q3

REPORT INFORMATION
  Report Type: Report from Study
  Country: ES (occurrence: ES)
  Receive Date: 20180301
  Receipt Date: 20180810
  Transmission Date: 20181010
  Serious: Yes (Death, Life-Threatening, Other)
  Sender: FDA-Public Use
  Company Number: ES-PFIZER INC-2018086284

PATIENT

DRUGS (3)
  1. MITOXANTRONE [Suspect]
     Active Substance: MITOXANTRONE HYDROCHLORIDE
     Indication: ACUTE PROMYELOCYTIC LEUKAEMIA
     Dosage: 10 MG/M2/D, DAILY, ANTHRACYCLINE MONOTHERAPY; PETHEMA LPA2005 PROTOCOL
  2. IDARUBICIN HCL [Suspect]
     Active Substance: IDARUBICIN HYDROCHLORIDE
     Indication: ACUTE PROMYELOCYTIC LEUKAEMIA
     Dosage: 5, 7, 12 MG/M2/D, DAILY, ANTHRACYCLINE MONOTHERAPY; PETHEMA LPA2005 PROTOCOL
  3. ALL?TRANS RETINOIC ACID [Suspect]
     Active Substance: TRETINOIN
     Indication: ACUTE PROMYELOCYTIC LEUKAEMIA
     Dosage: 45 MG/M2/D, 1X/DAY, ATRA?BASED PETHEMA LPA2005 PROTOCOL

REACTIONS (13)
  - Oral disorder [Fatal]
  - Neutropenia [Fatal]
  - Haemorrhage [Fatal]
  - Acute promyelocytic leukaemia differentiation syndrome [Fatal]
  - Cardiogenic shock [Fatal]
  - Hepatotoxicity [Fatal]
  - Neoplasm recurrence [Fatal]
  - Second primary malignancy [Fatal]
  - Neoplasm [Fatal]
  - Infection [Fatal]
  - Thrombosis [Fatal]
  - Diarrhoea [Fatal]
  - Thrombocytopenia [Fatal]
